FAERS Safety Report 9177633 (Version 1)
Quarter: 2013Q1

REPORT INFORMATION
  Report Type: Spontaneous
  Country: GB (occurrence: GB)
  Receive Date: 20130321
  Receipt Date: 20130321
  Transmission Date: 20140127
  Serious: Yes (Other)
  Sender: FDA-Public Use
  Company Number: GB-ASTRAZENECA-2013SE17533

PATIENT
  Age: 71 Year
  Sex: Female
  Weight: 83.6 kg

DRUGS (8)
  1. FELODIPINE [Suspect]
     Route: 048
     Dates: start: 20121018
  2. ASPIRIN [Concomitant]
     Dates: start: 20121018
  3. BISOPROLOL [Concomitant]
     Dates: start: 20121018
  4. CO-CODAMOL [Concomitant]
     Dates: start: 20121210, end: 20121226
  5. CO-CODAMOL [Concomitant]
     Dates: start: 20130206, end: 20130222
  6. OMEPRAZOLE [Concomitant]
     Dates: start: 20121018
  7. RAMIPRIL [Concomitant]
     Dates: start: 20121018
  8. SIMVASTATIN [Concomitant]
     Dates: start: 20121018

REACTIONS (1)
  - Joint swelling [Recovered/Resolved]
